FAERS Safety Report 12450797 (Version 1)
Quarter: 2016Q2

REPORT INFORMATION
  Report Type: Spontaneous
  Country: US (occurrence: None)
  Receive Date: 20160608
  Receipt Date: 20160608
  Transmission Date: 20160815
  Serious: Yes (Life-Threatening, Disabling, Other)
  Sender: FDA-Public Use
  Company Number: None

PATIENT
  Age: 51 Year
  Sex: Female
  Weight: 90.72 kg

DRUGS (4)
  1. BABY ASPIRIN [Concomitant]
     Active Substance: ASPIRIN
  2. GENERIC ZURTEC [Concomitant]
  3. ESTRADIOL. [Concomitant]
     Active Substance: ESTRADIOL
  4. LEVOTHYROXINE 50 MPG MYLAND AND SANTOZ [Suspect]
     Active Substance: LEVOTHYROXINE
     Indication: THYROID DISORDER

REACTIONS (7)
  - Therapeutic response changed [None]
  - Swelling face [None]
  - Eye swelling [None]
  - Gingival swelling [None]
  - Swollen tongue [None]
  - Urticaria [None]
  - Product substitution issue [None]

NARRATIVE: CASE EVENT DATE: 20160427
